FAERS Safety Report 24393219 (Version 2)
Quarter: 2024Q4

REPORT INFORMATION
  Report Type: Spontaneous
  Country: CN (occurrence: CN)
  Receive Date: 20241003
  Receipt Date: 20241014
  Transmission Date: 20250114
  Serious: Yes (Hospitalization, Other)
  Sender: NOVARTIS
  Company Number: CN-002147023-NVSC2024CN193641

PATIENT
  Age: 32 Year
  Sex: Female

DRUGS (4)
  1. CYCLOSPORINE [Suspect]
     Active Substance: CYCLOSPORINE
     Indication: Aplastic anaemia
     Dosage: 125 MG, BID (125MG IN THE MORNING AND 125MG IN THE EVENING)
     Route: 048
     Dates: start: 201910, end: 202212
  2. CYCLOSPORINE [Suspect]
     Active Substance: CYCLOSPORINE
     Dosage: UNK
     Route: 048
     Dates: start: 202212
  3. CYCLOSPORINE [Suspect]
     Active Substance: CYCLOSPORINE
     Dosage: 125 MG, BID (125MG IN THE MORNING AND 125MG IN THE EVENING)
     Route: 048
  4. TESTOSTERONE UNDECANOATE [Concomitant]
     Active Substance: TESTOSTERONE UNDECANOATE
     Indication: Aplastic anaemia
     Dosage: 3 DOSAGE FORM, QD (THREE PILLS A DAY)
     Route: 065

REACTIONS (4)
  - Aplastic anaemia [Recovering/Resolving]
  - Platelet count decreased [Recovering/Resolving]
  - Myelosuppression [Unknown]
  - Product use in unapproved indication [Unknown]
